FAERS Safety Report 15961183 (Version 1)
Quarter: 2019Q1

REPORT INFORMATION
  Report Type: Other
  Country: DE (occurrence: DE)
  Receive Date: 20190214
  Receipt Date: 20190214
  Transmission Date: 20190417
  Serious: Yes (Congenital Anomaly, Other)
  Sender: FDA-Public Use
  Company Number: DE-MACLEODS PHARMACEUTICALS US LTD-MAC2019020077

PATIENT

DRUGS (3)
  1. ESCITALOPRAM [Suspect]
     Active Substance: ESCITALOPRAM OXALATE
     Indication: DEPRESSION
     Dosage: UNK, 10 [MG/D (5)], 1 {TRIMESTER}, 0-5.5. GESTATIONAL WEEK
     Route: 064
     Dates: start: 20170806, end: 20170915
  2. FOLSAURE [Concomitant]
     Active Substance: FOLIC ACID
     Indication: PROPHYLAXIS OF NEURAL TUBE DEFECT
     Dosage: UNK, 4.4-5.3. GESTATIONAL WEEK, 1 {TRIMESTER}
     Route: 064
     Dates: start: 20170907, end: 20170913
  3. SKINOREN [Concomitant]
     Active Substance: AZELAIC ACID
     Indication: ACNE
     Dosage: UNK, TRIMESTER: PRECONCEPTIONAL
     Route: 064

REACTIONS (3)
  - Transposition of the great vessels [Not Recovered/Not Resolved]
  - Atrial septal defect [Not Recovered/Not Resolved]
  - Foetal exposure during pregnancy [Unknown]

NARRATIVE: CASE EVENT DATE: 20180416
